FAERS Safety Report 18257525 (Version 5)
Quarter: 2021Q1

REPORT INFORMATION
  Report Type: Spontaneous
  Country: US (occurrence: US)
  Receive Date: 20200911
  Receipt Date: 20210315
  Transmission Date: 20210419
  Serious: Yes (Disabling)
  Sender: FDA-Public Use
  Company Number: US-PFIZER INC-2020183821

PATIENT
  Age: 81 Year
  Sex: Female

DRUGS (2)
  1. LYRICA [Suspect]
     Active Substance: PREGABALIN
     Indication: ARTHRALGIA
  2. LYRICA [Suspect]
     Active Substance: PREGABALIN
     Indication: SPINAL OSTEOARTHRITIS
     Dosage: 75 MG, 2X/DAY (1 CAPSULE(S) BY MOUTH 2 TIMES A DAY)
     Route: 048

REACTIONS (6)
  - Blister [Unknown]
  - Off label use [Unknown]
  - Vision blurred [Unknown]
  - Somnolence [Unknown]
  - Balance disorder [Unknown]
  - Hearing disability [Unknown]
